FAERS Safety Report 18687249 (Version 3)
Quarter: 2021Q1

REPORT INFORMATION
  Report Type: Spontaneous
  Country: US (occurrence: US)
  Receive Date: 20201231
  Receipt Date: 20210304
  Transmission Date: 20210419
  Serious: Yes (Other)
  Sender: FDA-Public Use
  Company Number: US-JNJFOC-20201252787

PATIENT
  Age: 56 Year
  Sex: Male
  Weight: 140.1 kg

DRUGS (9)
  1. DEPAKOTE [Concomitant]
     Active Substance: DIVALPROEX SODIUM
     Route: 065
  2. ASPIRINE [Concomitant]
     Active Substance: ASPIRIN
     Route: 065
  3. NAVANE [TIOTIXENE] [Concomitant]
     Indication: ANXIETY
     Route: 065
  4. INVEGA SUSTENNA [Suspect]
     Active Substance: PALIPERIDONE PALMITATE
     Indication: PRODUCT USED FOR UNKNOWN INDICATION
     Route: 030
  5. INVEGA SUSTENNA [Suspect]
     Active Substance: PALIPERIDONE PALMITATE
  6. MACOX [Concomitant]
     Route: 065
  7. SEROQUEL [Concomitant]
     Active Substance: QUETIAPINE FUMARATE
     Route: 065
  8. TUMS [Concomitant]
     Active Substance: CALCIUM CARBONATE
     Indication: GASTRITIS
     Route: 065
  9. INVEGA SUSTENNA [Suspect]
     Active Substance: PALIPERIDONE PALMITATE

REACTIONS (7)
  - Fasciitis [Unknown]
  - Gastric ulcer [Unknown]
  - Paranoia [Unknown]
  - Gastric perforation [Unknown]
  - Delusion [Unknown]
  - Pruritus [Unknown]
  - Drug abuser [Unknown]
